FAERS Safety Report 10020718 (Version 1)
Quarter: 2013Q4

REPORT INFORMATION
  Report Type: Spontaneous
  Country: GB (occurrence: None)
  Receive Date: 20131127
  Receipt Date: 20131127
  Transmission Date: 20140711
  Serious: Yes (Other)
  Sender: FDA-Public Use
  Company Number: B0908170A

PATIENT
  Age: 67 Year
  Sex: Male

DRUGS (3)
  1. ROPINIROLE HYDROCHLORIDE [Suspect]
     Indication: PARKINSON^S DISEASE
     Dosage: 12-UNKNOWN, 4 MG / PER DAY / ORAL
     Route: 048
  2. CO-CARELDOPA [Suspect]
     Indication: PARKINSON^S DISEASE
  3. SELEGILINE [Suspect]
     Indication: PARKINSON^S DISEASE

REACTIONS (3)
  - Parkinsonian crisis [None]
  - Parkinsonism hyperpyrexia syndrome [None]
  - Orthostatic hypotension [None]
